FAERS Safety Report 12916433 (Version 2)
Quarter: 2016Q4

REPORT INFORMATION
  Report Type: Spontaneous
  Country: IR (occurrence: IR)
  Receive Date: 20161107
  Receipt Date: 20161219
  Transmission Date: 20170207
  Serious: Yes (Life-Threatening)
  Sender: FDA-Public Use
  Company Number: IR-SUN PHARMACEUTICAL INDUSTRIES LTD-2016R1-126982

PATIENT
  Age: 60 Year
  Sex: Male

DRUGS (2)
  1. DEPAKENE [Suspect]
     Active Substance: VALPROIC ACID
     Indication: PROPHYLAXIS
     Dosage: 1000 MG, QD
     Route: 048
  2. DEPAKENE [Suspect]
     Active Substance: VALPROIC ACID
     Dosage: 500 MG, QD
     Route: 048

REACTIONS (1)
  - Drug reaction with eosinophilia and systemic symptoms [Recovering/Resolving]
